FAERS Safety Report 12703754 (Version 2)
Quarter: 2016Q4

REPORT INFORMATION
  Report Type: Report from Study
  Country: GB (occurrence: GB)
  Receive Date: 20160831
  Receipt Date: 20161223
  Transmission Date: 20170207
  Serious: Yes (Other)
  Sender: FDA-Public Use
  Company Number: GB-JNJFOC-20160617507

PATIENT
  Sex: Female

DRUGS (3)
  1. CITALOPRAM [Concomitant]
     Active Substance: CITALOPRAM HYDROBROMIDE
     Route: 048
     Dates: start: 201211
  2. METHOTREXATE. [Concomitant]
     Active Substance: METHOTREXATE
     Route: 048
     Dates: start: 201103
  3. STELARA [Suspect]
     Active Substance: USTEKINUMAB
     Indication: PSORIASIS
     Route: 058
     Dates: start: 201202

REACTIONS (5)
  - Localised infection [Unknown]
  - Urinary tract infection [Recovered/Resolved]
  - Cough [Recovering/Resolving]
  - Fatigue [Recovered/Resolved]
  - Psoriasis [Not Recovered/Not Resolved]

NARRATIVE: CASE EVENT DATE: 2013
